FAERS Safety Report 6689378-6 (Version None)
Quarter: 2010Q2

REPORT INFORMATION
  Report Type: 
  Country: None (occurrence: None)
  Receive Date: 20100419
  Receipt Date: 20100419
  Transmission Date: 20101027
  Serious: Yes (Life-Threatening, Hospitalization, Other)
  Sender: FDA-Public Use
  Company Number: None

PATIENT
  Age: 48 Year
  Sex: Female
  Weight: 107.9561 kg

DRUGS (2)
  1. SIMVASTATIN [Suspect]
     Indication: BLOOD CHOLESTEROL
     Dosage: 80MG 1 PER DAY PO
     Route: 048
     Dates: start: 20010401, end: 20100319
  2. GEMFIBROZIL [Suspect]
     Indication: BLOOD CHOLESTEROL
     Dosage: 600 MG 2 DAILY PO
     Route: 048
     Dates: start: 20010401, end: 20100319

REACTIONS (1)
  - CHEST PAIN [None]
